FAERS Safety Report 17464693 (Version 1)
Quarter: 2020Q1

REPORT INFORMATION
  Report Type: Spontaneous
  Country: FR (occurrence: FR)
  Receive Date: 20200226
  Receipt Date: 20200226
  Transmission Date: 20200409
  Serious: Yes (Other)
  Sender: FDA-Public Use
  Company Number: NVSC2020FR046797

PATIENT
  Age: 54 Year
  Sex: Female

DRUGS (2)
  1. SPIRAMYCINE [Suspect]
     Active Substance: SPIRAMYCIN
     Indication: DENTAL CARE
     Dosage: 3 MIU, QD
     Route: 048
     Dates: start: 20191114, end: 20191115
  2. METRONIDAZOLE. [Suspect]
     Active Substance: METRONIDAZOLE
     Indication: DENTAL CARE
     Dosage: 500 MG, QD
     Route: 048
     Dates: start: 20191114, end: 20191115

REACTIONS (2)
  - Face oedema [Recovered/Resolved]
  - Rash [Recovered/Resolved]

NARRATIVE: CASE EVENT DATE: 20191116
